FAERS Safety Report 10057867 (Version 2)
Quarter: 2014Q3

REPORT INFORMATION
  Report Type: Spontaneous
  Country: IT (occurrence: None)
  Receive Date: 20140402
  Receipt Date: 20140722
  Transmission Date: 20150326
  Serious: Yes (Hospitalization)
  Sender: FDA-Public Use
  Company Number: AUR-APL-2014-04029

PATIENT
  Age: 29 Year
  Sex: Male

DRUGS (5)
  1. CHLORPHENAMINE MALEATE [Suspect]
     Active Substance: CHLORPHENIRAMINE MALEATE
     Indication: ERYTHEMA
     Route: 030
  2. CHLORPHENAMINE MALEATE [Suspect]
     Active Substance: CHLORPHENIRAMINE MALEATE
     Indication: LIP OEDEMA
     Route: 030
  3. CHLORPHENAMINE MALEATE [Suspect]
     Active Substance: CHLORPHENIRAMINE MALEATE
     Indication: PRURITUS
     Route: 030
  4. CHLORPHENAMINE MALEATE [Suspect]
     Active Substance: CHLORPHENIRAMINE MALEATE
     Indication: TACHYCARDIA
     Route: 030
  5. AMOXICILLIN. [Suspect]
     Active Substance: AMOXICILLIN
     Indication: UPPER RESPIRATORY TRACT INFECTION
     Dosage: 1 G,TOTAL,, ORAL
     Route: 048
     Dates: start: 20140205, end: 20140205

REACTIONS (4)
  - Erythema [None]
  - Lip oedema [None]
  - Tachycardia [None]
  - Pruritus [None]

NARRATIVE: CASE EVENT DATE: 20140205
